FAERS Safety Report 9225348 (Version 1)
Quarter: 2013Q2

REPORT INFORMATION
  Report Type: Spontaneous
  Country: ES (occurrence: None)
  Receive Date: 20130409
  Receipt Date: 20130409
  Transmission Date: 20140414
  Serious: Yes (Life-Threatening, Hospitalization, Other)
  Sender: FDA-Public Use
  Company Number: 2013P1004370

PATIENT
  Sex: Female

DRUGS (3)
  1. INFUMORPH [Suspect]
     Dates: end: 20130325
  2. CLONIDINE [Suspect]
  3. BUPIVACAINE [Suspect]

REACTIONS (7)
  - Medical device complication [None]
  - Somnolence [None]
  - Dyspnoea [None]
  - Hypertension [None]
  - Mental status changes [None]
  - Overdose [None]
  - Procedural complication [None]
